FAERS Safety Report 7125552-2 (Version None)
Quarter: 2010Q4

REPORT INFORMATION
  Report Type: 
  Country: None (occurrence: None)
  Receive Date: 20101115
  Receipt Date: 20101111
  Transmission Date: 20110411
  Serious: No
  Sender: FDA-Public Use
  Company Number: SP03244

PATIENT
  Age: 66 Year
  Sex: Female

DRUGS (5)
  1. MOVIPREP [Suspect]
     Indication: COLONOSCOPY
     Dosage: 1 LIT (1 LIT,1 IN 1 D),ORAL
     Route: 048
     Dates: start: 20101026, end: 20101027
  2. ANASTROZOLE [Concomitant]
  3. LEVOTHYROXINE SODIUM [Concomitant]
  4. JODID [Concomitant]
  5. CALCIUM [Concomitant]

REACTIONS (3)
  - ALANINE AMINOTRANSFERASE INCREASED [None]
  - ASPARTATE AMINOTRANSFERASE INCREASED [None]
  - GAMMA-GLUTAMYLTRANSFERASE INCREASED [None]
